FAERS Safety Report 6703324-8 (Version None)
Quarter: 2010Q2

REPORT INFORMATION
  Report Type: 
  Country: None (occurrence: None)
  Receive Date: 20100430
  Receipt Date: 20100413
  Transmission Date: 20101027
  Serious: Yes (Hospitalization, Other)
  Sender: FDA-Public Use
  Company Number: US-BAYER-201014263NA

PATIENT
  Age: 28 Year
  Sex: Female
  Weight: 81 kg

DRUGS (8)
  1. YAZ [Suspect]
     Indication: CONTRACEPTION
     Route: 048
     Dates: start: 20070401, end: 20081101
  2. XANAX [Concomitant]
     Indication: ANXIETY
     Route: 065
     Dates: start: 20070101
  3. LEXAPRO [Concomitant]
     Indication: ANXIETY
     Route: 065
     Dates: start: 20070101, end: 20080101
  4. VITAMINS [Concomitant]
     Indication: PROPHYLAXIS
     Route: 065
     Dates: start: 20040101
  5. ZOLOFT [Concomitant]
     Indication: POSTPARTUM DEPRESSION
     Route: 065
     Dates: start: 20070401
  6. LORTAB [Concomitant]
     Indication: POSTOPERATIVE CARE
     Route: 065
  7. KEFLEX [Concomitant]
     Indication: POSTOPERATIVE CARE
     Route: 065
  8. QUESTRAN [Concomitant]
     Indication: DRUG USE FOR UNKNOWN INDICATION
     Route: 065

REACTIONS (6)
  - ABDOMINAL PAIN [None]
  - BACK PAIN [None]
  - CHOLECYSTITIS [None]
  - CONSTIPATION [None]
  - DIARRHOEA [None]
  - FATIGUE [None]
